FAERS Safety Report 19599728 (Version 1)
Quarter: 2021Q3

REPORT INFORMATION
  Report Type: Spontaneous
  Country: US (occurrence: US)
  Receive Date: 20210723
  Receipt Date: 20210723
  Transmission Date: 20211014
  Serious: Yes (Hospitalization)
  Sender: FDA-Public Use
  Company Number: None

PATIENT
  Age: 81 Year
  Sex: Female

DRUGS (4)
  1. POT CHLORIDE TAB 10MEW ER [Concomitant]
     Dates: start: 20210719
  2. FUROSEMIDE TAB 40MG [Concomitant]
     Dates: start: 20210719
  3. EZETIMIBE TAB 10MG [Concomitant]
     Dates: start: 20210719
  4. PRALUENT [Suspect]
     Active Substance: ALIROCUMAB
     Indication: POLYNEUROPATHY
     Dosage: ?          OTHER FREQUENCY:Q2W;?
     Route: 058
     Dates: start: 20181010

REACTIONS (1)
  - Cerebrovascular accident [None]

NARRATIVE: CASE EVENT DATE: 20210715
